FAERS Safety Report 4307372-7 (Version None)
Quarter: 2004Q1

REPORT INFORMATION
  Report Type: 
  Country: None (occurrence: None)
  Receive Date: 20040226
  Receipt Date: 20040211
  Transmission Date: 20041129
  Serious: Yes (Hospitalization)
  Sender: FDA-Public Use
  Company Number: CERZ-10499

PATIENT
  Age: 27 Month
  Sex: Male
  Weight: 18 kg

DRUGS (3)
  1. CEREZYME [Suspect]
     Indication: GAUCHER'S DISEASE
     Dosage: 2000 UNITS QWK IV
     Route: 042
     Dates: start: 20030501, end: 20040114
  2. CEREZYME [Suspect]
     Indication: GAUCHER'S DISEASE
     Dosage: 2000 UNITS QWK IV
     Route: 042
     Dates: start: 20040123
  3. PENICILLIN [Concomitant]

REACTIONS (1)
  - NO ADVERSE EFFECT [None]
